FAERS Safety Report 23697579 (Version 1)
Quarter: 2024Q2

REPORT INFORMATION
  Report Type: Spontaneous
  Country: SA (occurrence: SA)
  Receive Date: 20240402
  Receipt Date: 20240402
  Transmission Date: 20240716
  Serious: Yes (Life-Threatening, Hospitalization)
  Sender: FDA-Public Use
  Company Number: SA-MYLANLABS-2024M1029844

PATIENT
  Age: 20 Year
  Sex: Female

DRUGS (1)
  1. AMLODIPINE [Suspect]
     Active Substance: AMLODIPINE BESYLATE
     Indication: Product used for unknown indication
     Dosage: 58 DOSAGE FORM
     Route: 065

REACTIONS (2)
  - Cardiotoxicity [Recovered/Resolved]
  - Overdose [Recovered/Resolved]
